FAERS Safety Report 6784218-9 (Version None)
Quarter: 2010Q2

REPORT INFORMATION
  Report Type: 
  Country: None (occurrence: None)
  Receive Date: 20100617
  Receipt Date: 20100127
  Transmission Date: 20101027
  Serious: Yes (Other)
  Sender: FDA-Public Use
  Company Number: 2010VX000203

PATIENT
  Age: 87 Year
  Sex: Male
  Weight: 81.6475 kg

DRUGS (13)
  1. EFUDEX [Suspect]
     Indication: DRUG USE FOR UNKNOWN INDICATION
     Dosage: 1 DF;BID;TOP
     Route: 061
     Dates: start: 20100107, end: 20100120
  2. WARFARIN SODIUM [Suspect]
     Indication: DRUG USE FOR UNKNOWN INDICATION
     Dosage: 3 MG;QD;PO, 2.5 MG;QD;PO
     Route: 048
     Dates: start: 20090801, end: 20100119
  3. WARFARIN SODIUM [Suspect]
     Indication: DRUG USE FOR UNKNOWN INDICATION
     Dosage: 3 MG;QD;PO, 2.5 MG;QD;PO
     Route: 048
     Dates: start: 20100126
  4. ADVAIR DISKUS 100/50 [Concomitant]
  5. TIOTROPIUM BROMIDE [Concomitant]
  6. FERROUS GLUCEPTATE [Concomitant]
  7. VITAMIN D [Concomitant]
  8. ASPIRIN [Concomitant]
  9. FUROSEMIDE [Concomitant]
  10. CALCIUM CARBONATE [Concomitant]
  11. RAMIPRIL [Concomitant]
  12. ATENOLOL [Concomitant]
  13. LIPITOR [Concomitant]

REACTIONS (2)
  - EPISTAXIS [None]
  - INTERNATIONAL NORMALISED RATIO INCREASED [None]
